FAERS Safety Report 24291052 (Version 4)
Quarter: 2024Q4

REPORT INFORMATION
  Report Type: Spontaneous
  Country: US (occurrence: US)
  Receive Date: 20240906
  Receipt Date: 20241228
  Transmission Date: 20250114
  Serious: Yes (Hospitalization, Disabling)
  Sender: IPSEN BIOPHARMACEUTICALS, INC.
  Company Number: US-IPSEN Group, Research and Development-2024-17515

PATIENT
  Age: 84 Year
  Sex: Male

DRUGS (24)
  1. ONIVYDE [Suspect]
     Active Substance: IRINOTECAN HYDROCHLORIDE
     Indication: Colorectal cancer
     Route: 042
     Dates: start: 20240717, end: 20240820
  2. ONIVYDE [Suspect]
     Active Substance: IRINOTECAN HYDROCHLORIDE
     Route: 042
     Dates: start: 20240827
  3. SIREXATAMAB [Suspect]
     Active Substance: SIREXATAMAB
     Indication: Colorectal cancer
     Route: 042
     Dates: start: 20240717, end: 20240820
  4. SIREXATAMAB [Suspect]
     Active Substance: SIREXATAMAB
     Route: 042
     Dates: start: 20240827
  5. LEUCOVORIN [Suspect]
     Active Substance: LEUCOVORIN\LEUCOVORIN CALCIUM
     Indication: Colorectal cancer
     Route: 042
     Dates: start: 20240717, end: 20240820
  6. FLUOROURACIL [Suspect]
     Active Substance: FLUOROURACIL
     Indication: Colorectal cancer
     Route: 042
     Dates: start: 20240717, end: 20240820
  7. FLUOROURACIL [Suspect]
     Active Substance: FLUOROURACIL
     Route: 042
     Dates: start: 20240827
  8. BEVACIZUMAB [Suspect]
     Active Substance: BEVACIZUMAB
     Indication: Colorectal cancer
     Route: 042
     Dates: start: 20240717, end: 20240820
  9. BEVACIZUMAB [Suspect]
     Active Substance: BEVACIZUMAB
     Route: 042
     Dates: start: 20240827
  10. ROSUVASTATIN [Concomitant]
     Active Substance: ROSUVASTATIN
     Dosage: ONGOING
     Dates: start: 20220601
  11. FLONASE ALLERGY RELIEF [Concomitant]
     Active Substance: FLUTICASONE PROPIONATE
     Dosage: ONGOING
     Dates: start: 20220601
  12. TYLENOL ARTHRITIS PAIN [Concomitant]
     Active Substance: ACETAMINOPHEN
     Dosage: ONGOING
     Dates: start: 20220601
  13. ZYRTEC [Concomitant]
     Active Substance: CETIRIZINE HYDROCHLORIDE
     Dosage: ONGOING
     Dates: start: 20220601
  14. OMEPRAZOLE [Concomitant]
     Active Substance: OMEPRAZOLE
     Dosage: ONGOING
     Dates: start: 20220601
  15. CARVEDILOL [Concomitant]
     Active Substance: CARVEDILOL
     Dosage: ONGOING
     Dates: start: 20220601
  16. LIDOCAINE\PRILOCAINE HYDROCHLORIDE [Concomitant]
     Active Substance: LIDOCAINE\PRILOCAINE HYDROCHLORIDE
     Dosage: ONGOING
     Dates: start: 20220628
  17. ONDANSETRON [Concomitant]
     Active Substance: ONDANSETRON
     Dosage: ONGOING
     Dates: start: 20220628
  18. CENTRUM GENDER +50 [Concomitant]
     Dates: start: 2024, end: 20240810
  19. AMLODIPINE [Concomitant]
     Active Substance: AMLODIPINE BESYLATE
     Dates: start: 20240206, end: 20240810
  20. HYDROCHLOROTHIAZIDE [Concomitant]
     Active Substance: HYDROCHLOROTHIAZIDE
     Dosage: ONGOING
     Dates: start: 20240305
  21. XANAX [Concomitant]
     Active Substance: ALPRAZOLAM
     Dosage: ONGOING
     Dates: start: 20240528
  22. IMODIUM [Concomitant]
     Active Substance: LOPERAMIDE HYDROCHLORIDE
     Dosage: ONGOING
     Dates: start: 20240720
  23. VITAL PROTEINS COLLAGEN PEPTIDES [Concomitant]
     Dosage: ONGOING
     Dates: start: 20240721
  24. NIVESTYM [Concomitant]
     Active Substance: FILGRASTIM-AAFI
     Dosage: LIQUID
     Dates: start: 20240731, end: 20240731

REACTIONS (2)
  - Diarrhoea [Recovered/Resolved with Sequelae]
  - Off label use [Unknown]

NARRATIVE: CASE EVENT DATE: 20240717
